FAERS Safety Report 10430826 (Version 1)
Quarter: 2014Q1

REPORT INFORMATION
  Report Type: Spontaneous
  Country: US (occurrence: None)
  Receive Date: 20140127
  Receipt Date: 20140127
  Transmission Date: 20141002
  Serious: Yes (Other)
  Sender: FDA-Public Use
  Company Number: 1243829G

PATIENT
  Age: 51 Year
  Sex: Male

DRUGS (1)
  1. ACTIVASE [Suspect]
     Indication: ISCHAEMIC STROKE
     Route: 040

REACTIONS (7)
  - Haematoma [None]
  - Ecchymosis [None]
  - Gingival bleeding [None]
  - Tongue haemorrhage [None]
  - Oedema peripheral [None]
  - Catheter site haemorrhage [None]
  - Procedural haemorrhage [None]
